FAERS Safety Report 19505967 (Version 1)
Quarter: 2021Q3

REPORT INFORMATION
  Report Type: Spontaneous
  Country: JP (occurrence: JP)
  Receive Date: 20210708
  Receipt Date: 20210708
  Transmission Date: 20211014
  Serious: Yes (Hospitalization)
  Sender: FDA-Public Use
  Company Number: JP-VYNE PHARMACEUTICALS INC-2021-VYNE-JP003308

PATIENT

DRUGS (2)
  1. MINOCYCLINE [Suspect]
     Active Substance: MINOCYCLINE HYDROCHLORIDE
     Indication: PNEUMONIA MYCOPLASMAL
     Dosage: UNK UNK, DAILY
     Route: 042
  2. RUXOLITINIB [Concomitant]
     Active Substance: RUXOLITINIB
     Indication: POLYCYTHAEMIA VERA
     Dosage: UNK
     Route: 048

REACTIONS (3)
  - Pulmonary embolism [Recovered/Resolved]
  - Thrombophlebitis superficial [Recovered/Resolved]
  - Splenic infarction [Recovered/Resolved]
